FAERS Safety Report 17942386 (Version 1)
Quarter: 2020Q2

REPORT INFORMATION
  Report Type: Spontaneous
  Country: CN (occurrence: CN)
  Receive Date: 20200625
  Receipt Date: 20200625
  Transmission Date: 20200714
  Serious: Yes (Other)
  Sender: FDA-Public Use
  Company Number: CN-ROCHE-2629348

PATIENT
  Age: 66 Year
  Sex: Male

DRUGS (8)
  1. AVASTIN [Suspect]
     Active Substance: BEVACIZUMAB
     Dosage: 21 AUG 2019, 11 SEP 2019, 01 OCT 2019 AND 27 OCT 2019
     Route: 065
  2. PEMETREXED. [Concomitant]
     Active Substance: PEMETREXED
     Dosage: 21 AUG 2019, 11 SEP 2019, 01 OCT 2019 AND 27 OCT 2019
     Route: 065
  3. CISPLATIN. [Concomitant]
     Active Substance: CISPLATIN
     Indication: LUNG ADENOCARCINOMA
     Route: 065
     Dates: start: 20190710, end: 20190731
  4. DOCETAXEL. [Concomitant]
     Active Substance: DOCETAXEL
     Indication: LUNG ADENOCARCINOMA
     Dosage: 14 FEB 2020, 06 MAR 2020 AND 27 MAR 2020
     Route: 065
  5. AVASTIN [Suspect]
     Active Substance: BEVACIZUMAB
     Dosage: 19 NOV 2019, 17 DEC 2019 AND 14 JAN 2020
     Route: 065
  6. CARBOPLATIN. [Concomitant]
     Active Substance: CARBOPLATIN
     Indication: LUNG ADENOCARCINOMA
     Dosage: 21 AUG 2019, 11 SEP 2019, 01 OCT 2019 AND 27 OCT 2019
     Route: 065
  7. PEMETREXED. [Concomitant]
     Active Substance: PEMETREXED
     Indication: LUNG ADENOCARCINOMA
     Route: 065
     Dates: start: 20190710, end: 20190731
  8. AVASTIN [Suspect]
     Active Substance: BEVACIZUMAB
     Indication: LUNG ADENOCARCINOMA
     Route: 065
     Dates: start: 20190710, end: 20190731

REACTIONS (3)
  - Hyperkalaemia [Recovering/Resolving]
  - Haemangioma [Unknown]
  - Acute kidney injury [Recovering/Resolving]
